FAERS Safety Report 25050927 (Version 1)
Quarter: 2025Q1

REPORT INFORMATION
  Report Type: Spontaneous
  Country: US (occurrence: US)
  Receive Date: 20250307
  Receipt Date: 20250307
  Transmission Date: 20250409
  Serious: No
  Sender: BLUEPRINT MEDICINES
  Company Number: US-Blueprint Medicines Corporation-2025-AER-00413

PATIENT
  Age: 47 Year
  Sex: Male

DRUGS (1)
  1. AYVAKIT [Suspect]
     Active Substance: AVAPRITINIB
     Indication: Haematopoietic neoplasm
     Route: 065
     Dates: start: 20250107

REACTIONS (5)
  - Dizziness [Unknown]
  - Anxiety [Unknown]
  - Feeling abnormal [Unknown]
  - Flushing [Recovering/Resolving]
  - Feeling cold [Unknown]
